FAERS Safety Report 18923355 (Version 2)
Quarter: 2021Q1

REPORT INFORMATION
  Report Type: Spontaneous
  Country: US (occurrence: US)
  Receive Date: 20210222
  Receipt Date: 20210309
  Transmission Date: 20210420
  Serious: No
  Sender: FDA-Public Use
  Company Number: US-PFIZER INC-2017330396

PATIENT
  Age: 73 Year
  Sex: Female
  Weight: 85.5 kg

DRUGS (12)
  1. LYRICA [Suspect]
     Active Substance: PREGABALIN
     Indication: PAIN OF SKIN
     Dosage: UNK (TAKING HER MEDICINES 4?5 TIMES A DAY)
  2. BAYER ASPIRIN [Concomitant]
     Active Substance: ASPIRIN
     Dosage: 325 MG, DAILY
     Route: 048
  3. PRAVASTATIN. [Concomitant]
     Active Substance: PRAVASTATIN
     Dosage: 40 MG, 1X/DAY (HS)
     Route: 048
  4. LYRICA [Suspect]
     Active Substance: PREGABALIN
     Indication: TRIGEMINAL NEURALGIA
     Dosage: 225 MG, 2X/DAY (3 CAPS ORAL BID)
     Route: 048
     Dates: start: 2017, end: 2017
  5. ASPIRIN. [Concomitant]
     Active Substance: ASPIRIN
     Dosage: 81 MG, DAILY
     Route: 048
  6. AMLODIPINE [Concomitant]
     Active Substance: AMLODIPINE BESYLATE
     Dosage: 5 MG, UNK
     Route: 048
  7. LYRICA [Suspect]
     Active Substance: PREGABALIN
     Indication: FACIAL PAIN
     Dosage: 150 MG, 2X/DAY (2 CAPSULES TWICE A DAY)
     Dates: start: 2017
  8. METFORMIN [Concomitant]
     Active Substance: METFORMIN HYDROCHLORIDE
     Dosage: 1000 MG, 2X/DAY (2 TAB, ORAL BID)
     Route: 048
  9. LASIX [Concomitant]
     Active Substance: FUROSEMIDE
     Dosage: 20 MG, 2X/WEEK ((AS DIRECTED) (TAKES MONDAY AND THURSDAY))
  10. LYRICA [Suspect]
     Active Substance: PREGABALIN
     Dosage: 375 MG, DAILY (TAKE 2 TAB ORAL AM AND 3 CAP AT BEDTIME X 90 DAY)
     Route: 048
  11. GLIPIZIDE. [Concomitant]
     Active Substance: GLIPIZIDE
     Dosage: 5 MG, DAILY
     Route: 048
  12. ATENOLOL. [Concomitant]
     Active Substance: ATENOLOL
     Dosage: 50 MG, DAILY
     Route: 048

REACTIONS (2)
  - Panic attack [Unknown]
  - Circumstance or information capable of leading to medication error [Unknown]
